FAERS Safety Report 5744794-1 (Version None)
Quarter: 2008Q2

REPORT INFORMATION
  Report Type: 
  Country: None (occurrence: None)
  Receive Date: 20080516
  Receipt Date: 20080501
  Transmission Date: 20081010
  Serious: Yes (Hospitalization)
  Sender: FDA-Public Use
  Company Number: 2008AL003190

PATIENT
  Age: 70 Year
  Sex: Male
  Weight: 97.5234 kg

DRUGS (5)
  1. DIGOXIN [Suspect]
     Dosage: .025 MG DAILY PO
     Route: 048
     Dates: start: 20080101
  2. LOPRESSOR [Concomitant]
  3. COUMADIN [Concomitant]
  4. PERSANTINE [Concomitant]
  5. AXID [Concomitant]

REACTIONS (2)
  - MUSCULOSKELETAL DISORDER [None]
  - PALPITATIONS [None]
